FAERS Safety Report 9473820 (Version 4)
Quarter: 2014Q4

REPORT INFORMATION
  Report Type: Spontaneous
  Country: US (occurrence: US)
  Receive Date: 20130823
  Receipt Date: 20141205
  Transmission Date: 20150529
  Serious: Yes (Other)
  Sender: FDA-Public Use
  Company Number: US-BRISTOL-MYERS SQUIBB COMPANY-17023888

PATIENT
  Age: 30 Year
  Sex: Female
  Weight: 77.1 kg

DRUGS (2)
  1. MAGNESIUM [Concomitant]
     Active Substance: MAGNESIUM
  2. SPRYCEL [Suspect]
     Active Substance: DASATINIB
     Indication: CHRONIC MYELOID LEUKAEMIA
     Dosage: 3C6031B,EXP DATE:31MAR16
     Route: 048
     Dates: start: 201203

REACTIONS (8)
  - Oligomenorrhoea [Unknown]
  - Abdominal pain lower [Unknown]
  - Abdominal distension [Unknown]
  - Endometriosis [Unknown]
  - Herpes zoster [Unknown]
  - Folliculitis [Unknown]
  - Scar [Unknown]
  - Uterine leiomyoma [Unknown]

NARRATIVE: CASE EVENT DATE: 2012
